FAERS Safety Report 17770518 (Version 1)
Quarter: 2020Q2

REPORT INFORMATION
  Report Type: Spontaneous
  Country: US (occurrence: US)
  Receive Date: 20200512
  Receipt Date: 20200512
  Transmission Date: 20200714
  Serious: No
  Sender: FDA-Public Use
  Company Number: US-GLAXOSMITHKLINE-US2020078685

PATIENT
  Age: 86 Year
  Sex: Female

DRUGS (2)
  1. INCRUSE ELLIPTA [Suspect]
     Active Substance: UMECLIDINIUM BROMIDE
     Indication: ASTHMA
     Dosage: UNK
     Route: 065
  2. XOPENEX HFA [Suspect]
     Active Substance: LEVALBUTEROL TARTRATE
     Indication: ASTHMA
     Dosage: 2 PUFF(S)
     Route: 065

REACTIONS (4)
  - Product use in unapproved indication [Unknown]
  - Off label use [Unknown]
  - Prescription drug used without a prescription [Unknown]
  - Asthma [Unknown]

NARRATIVE: CASE EVENT DATE: 20200508
